FAERS Safety Report 11254032 (Version 1)
Quarter: 2015Q3

REPORT INFORMATION
  Report Type: Spontaneous
  Country: GB (occurrence: GB)
  Receive Date: 20150709
  Receipt Date: 20150709
  Transmission Date: 20151125
  Serious: Yes (Hospitalization)
  Sender: FDA-Public Use
  Company Number: GB-TEVA-575775ACC

PATIENT
  Age: 90 Year

DRUGS (6)
  1. INDORAMIN [Concomitant]
     Active Substance: INDORAMIN
     Dosage: 40 MILLIGRAM DAILY;
     Route: 048
  2. QUININE [Concomitant]
     Active Substance: QUININE
     Dosage: 300 MILLIGRAM DAILY; AT NIGHT.
     Route: 048
  3. FUROSEMIDE. [Concomitant]
     Active Substance: FUROSEMIDE
     Dosage: 40 MILLIGRAM DAILY; EVERY MORNING.
     Route: 048
  4. BISOPROLOL [Suspect]
     Active Substance: BISOPROLOL
     Indication: PRODUCT USED FOR UNKNOWN INDICATION
     Dosage: 1.25 MILLIGRAM DAILY;
     Route: 048
  5. SIMVASTATIN. [Concomitant]
     Active Substance: SIMVASTATIN
     Dosage: 40 MILLIGRAM DAILY; AT NIGHT.
     Route: 044
  6. CLOPIDOGREL [Concomitant]
     Active Substance: CLOPIDOGREL BISULFATE
     Dosage: 75 MILLIGRAM DAILY;
     Route: 048

REACTIONS (3)
  - Bradycardia [Recovered/Resolved]
  - Fall [Recovered/Resolved]
  - Atrioventricular block first degree [Unknown]
